FAERS Safety Report 5386080-8 (Version None)
Quarter: 2007Q3

REPORT INFORMATION
  Report Type: 
  Country: None (occurrence: None)
  Receive Date: 20070710
  Receipt Date: 20070625
  Transmission Date: 20080115
  Serious: Yes (Disabling)
  Sender: FDA-Public Use
  Company Number: 2007RR-08244

PATIENT
  Age: 87 Year
  Sex: Female

DRUGS (2)
  1. SIMVASTATIN [Suspect]
     Dosage: 10 MG, UNK, ORAL
     Route: 048
     Dates: start: 20061218, end: 20070109
  2. CANDESARTAN [Concomitant]

REACTIONS (2)
  - POLYMYALGIA RHEUMATICA [None]
  - RHEUMATOID ARTHRITIS [None]
